FAERS Safety Report 13695531 (Version 1)
Quarter: 2017Q2

REPORT INFORMATION
  Report Type: Spontaneous
  Country: FR (occurrence: FR)
  Receive Date: 20170627
  Receipt Date: 20170627
  Transmission Date: 20170830
  Serious: Yes (Other)
  Sender: FDA-Public Use
  Company Number: FR-MERCK KGAA-2022575

PATIENT
  Sex: Female

DRUGS (2)
  1. LEVOTHYROX NF [Suspect]
     Active Substance: LEVOTHYROXINE SODIUM
     Dates: start: 20170614
  2. NOVOTHYROX [Suspect]
     Active Substance: LEVOTHYROXINE SODIUM
     Indication: PRODUCT USED FOR UNKNOWN INDICATION
     Dates: start: 2006, end: 20170614

REACTIONS (5)
  - Sense of oppression [Unknown]
  - Angina pectoris [Unknown]
  - Heart rate increased [Unknown]
  - Hypersensitivity [Unknown]
  - Diarrhoea [Unknown]
